FAERS Safety Report 5813019-0 (Version None)
Quarter: 2008Q3

REPORT INFORMATION
  Report Type: 
  Country: None (occurrence: None)
  Receive Date: 20080717
  Receipt Date: 20071024
  Transmission Date: 20090109
  Serious: No
  Sender: FDA-Public Use
  Company Number: A0689512A

PATIENT
  Age: 66 Year
  Sex: Female

DRUGS (3)
  1. NICORETTE [Suspect]
  2. FIBERCHOICE PLUS CALCIUM SUGAR FREE ASSORTED BERRY [Suspect]
  3. NICORETTE [Suspect]

REACTIONS (3)
  - GASTRIC DISORDER [None]
  - INTENTIONAL DRUG MISUSE [None]
  - MALAISE [None]
